FAERS Safety Report 5570165-7 (Version None)
Quarter: 2007Q4

REPORT INFORMATION
  Report Type: 
  Country: None (occurrence: None)
  Receive Date: 20071220
  Receipt Date: 20071213
  Transmission Date: 20080405
  Serious: Yes (Hospitalization)
  Sender: FDA-Public Use
  Company Number: MY-PFIZER INC-2007068355

PATIENT
  Sex: Male
  Weight: 75 kg

DRUGS (10)
  1. SU-011,248 [Suspect]
     Indication: METASTATIC RENAL CELL CARCINOMA
     Route: 048
  2. CALCIUM PLUS [Concomitant]
     Route: 048
     Dates: start: 20070222, end: 20070301
  3. FOSAMAX [Concomitant]
     Route: 048
     Dates: start: 20070222, end: 20070301
  4. ZOCOR [Concomitant]
     Route: 048
  5. ALLOPURINOL [Concomitant]
     Route: 048
  6. ARCOXIA [Concomitant]
     Route: 048
  7. NEURONTIN [Concomitant]
     Route: 048
  8. ISORDIL [Concomitant]
     Route: 048
  9. FOSFOMYCIN [Concomitant]
     Route: 048
     Dates: start: 20070808, end: 20070808
  10. FORTUM [Concomitant]
     Route: 048
     Dates: start: 20070810, end: 20070812

REACTIONS (2)
  - BACK PAIN [None]
  - OSTEOMYELITIS [None]
